FAERS Safety Report 8083782-X (Version None)
Quarter: 2012Q1

REPORT INFORMATION
  Report Type: 
  Country: None (occurrence: None)
  Receive Date: 20120128
  Receipt Date: 20110203
  Transmission Date: 20120608
  Serious: Yes (Hospitalization)
  Sender: FDA-Public Use
  Company Number: US-ABBOTT-11P-163-0702375-00

PATIENT
  Sex: Female
  Weight: 47.67 kg

DRUGS (3)
  1. HUMIRA [Suspect]
     Dates: start: 20101101, end: 20110102
  2. HUMIRA [Suspect]
     Indication: CROHN'S DISEASE
     Dates: start: 20100901, end: 20110101
  3. PREDNISONE TAB [Concomitant]
     Indication: CROHN'S DISEASE
     Dates: start: 20101101

REACTIONS (6)
  - CROHN'S DISEASE [None]
  - MEMORY IMPAIRMENT [None]
  - FALL [None]
  - PARAESTHESIA [None]
  - VISUAL IMPAIRMENT [None]
  - HYPOAESTHESIA [None]
